FAERS Safety Report 7363820-X (Version None)
Quarter: 2011Q1

REPORT INFORMATION
  Report Type: 
  Country: None (occurrence: None)
  Receive Date: 20110321
  Receipt Date: 20110315
  Transmission Date: 20110831
  Serious: Yes (Hospitalization)
  Sender: FDA-Public Use
  Company Number: US-ROCHE-667217

PATIENT
  Sex: Male
  Weight: 80 kg

DRUGS (11)
  1. KLONOPIN [Concomitant]
  2. PROPRANOLOL [Concomitant]
  3. INSULIN [Concomitant]
     Dosage: LANTUS INSULIN
  4. MECLIZINE [Concomitant]
  5. RIBAVIRIN [Suspect]
     Dosage: FORM: PILL.
     Route: 048
     Dates: start: 20090220, end: 20091029
  6. PEGINTERFERON ALFA-2A [Suspect]
     Route: 058
     Dates: start: 20090220, end: 20091029
  7. NORCO [Concomitant]
     Dosage: TDD REPORTED AS 10/325 MG
     Dates: start: 20090320
  8. ZOLOFT [Concomitant]
  9. METFORMIN [Concomitant]
  10. SEROQUEL [Concomitant]
  11. PROPRANOLOL [Concomitant]

REACTIONS (1)
  - EPISTAXIS [None]
